FAERS Safety Report 18394630 (Version 1)
Quarter: 2020Q4

REPORT INFORMATION
  Report Type: Spontaneous
  Country: DE (occurrence: DE)
  Receive Date: 20201017
  Receipt Date: 20201017
  Transmission Date: 20210114
  Serious: Yes (Hospitalization)
  Sender: FDA-Public Use
  Company Number: NVSC2020DE278544

PATIENT
  Age: 70 Year
  Sex: Male

DRUGS (1)
  1. METOHEXAL SUCC 23,75 MG RETARDTABLETTEN [Suspect]
     Active Substance: METOPROLOL SUCCINATE
     Indication: CEREBROVASCULAR ACCIDENT
     Dosage: UNK UNK, BID
     Route: 065

REACTIONS (4)
  - Skin discolouration [Not Recovered/Not Resolved]
  - Dyspnoea [Not Recovered/Not Resolved]
  - Chills [Not Recovered/Not Resolved]
  - Peripheral coldness [Not Recovered/Not Resolved]
